FAERS Safety Report 18828035 (Version 1)
Quarter: 2021Q1

REPORT INFORMATION
  Report Type: Spontaneous
  Country: US (occurrence: US)
  Receive Date: 20210201
  Receipt Date: 20210201
  Transmission Date: 20210419
  Serious: Yes (Hospitalization, Other)
  Sender: FDA-Public Use
  Company Number: US-ABBVIE-20K-163-3497019-00

PATIENT
  Age: 24 Year
  Sex: Female
  Weight: 118.04 kg

DRUGS (1)
  1. HUMIRA [Suspect]
     Active Substance: ADALIMUMAB
     Indication: COLITIS ULCERATIVE
     Route: 058
     Dates: start: 20200624

REACTIONS (3)
  - Device issue [Unknown]
  - Colitis ulcerative [Recovering/Resolving]
  - Kidney enlargement [Recovered/Resolved]

NARRATIVE: CASE EVENT DATE: 20200620
